FAERS Safety Report 8351927-X (Version None)
Quarter: 2012Q2

REPORT INFORMATION
  Report Type: 
  Country: None (occurrence: None)
  Receive Date: 20120511
  Receipt Date: 20120507
  Transmission Date: 20120825
  Serious: No
  Sender: FDA-Public Use
  Company Number: US-PFIZER INC-2012112004

PATIENT
  Sex: Male

DRUGS (1)
  1. VFEND [Suspect]
     Indication: HEART TRANSPLANT
     Dosage: 1-200 MG BID

REACTIONS (1)
  - FLUID RETENTION [None]
